FAERS Safety Report 4910454-X (Version None)
Quarter: 2006Q1

REPORT INFORMATION
  Report Type: 
  Country: None (occurrence: None)
  Receive Date: 20060209
  Receipt Date: 20060130
  Transmission Date: 20060701
  Serious: Yes (Other)
  Sender: FDA-Public Use
  Company Number: 2006015290

PATIENT
  Sex: Male

DRUGS (2)
  1. CELECOXIB (CELECOXIB) [Suspect]
     Indication: ILL-DEFINED DISORDER
  2. NORVASC [Suspect]
     Indication: ILL-DEFINED DISORDER

REACTIONS (5)
  - ATRIAL FIBRILLATION [None]
  - BLOOD CHOLESTEROL INCREASED [None]
  - HYPERTENSION [None]
  - OSTEOARTHRITIS [None]
  - ROTATOR CUFF SYNDROME [None]
